FAERS Safety Report 14618636 (Version 1)
Quarter: 2018Q1

REPORT INFORMATION
  Report Type: Spontaneous
  Country: FR (occurrence: FR)
  Receive Date: 20180309
  Receipt Date: 20180309
  Transmission Date: 20180509
  Serious: Yes (Life-Threatening)
  Sender: FDA-Public Use
  Company Number: FR-PFIZER INC-2018094238

PATIENT
  Age: 86 Year
  Sex: Female
  Weight: 75 kg

DRUGS (4)
  1. ESOMEPRAZOLE MAGNESIUM. [Suspect]
     Active Substance: ESOMEPRAZOLE MAGNESIUM
     Indication: PROPHYLAXIS
     Dosage: 40 MG, 1X/DAY
     Route: 048
  2. TAHOR [Suspect]
     Active Substance: ATORVASTATIN CALCIUM
     Indication: PROPHYLAXIS
     Dosage: 40 MG, 1X/DAY
     Route: 048
  3. APROVEL [Suspect]
     Active Substance: IRBESARTAN
     Indication: HYPERTENSION
     Dosage: 75 MG, 1X/DAY
     Route: 048
  4. KEPPRA [Suspect]
     Active Substance: LEVETIRACETAM
     Indication: CONVULSION PROPHYLAXIS
     Dosage: 250 MG, 2X/DAY
     Route: 048
     Dates: start: 201203, end: 201802

REACTIONS (1)
  - Suicide attempt [Recovering/Resolving]

NARRATIVE: CASE EVENT DATE: 20180204
